FAERS Safety Report 10290284 (Version 2)
Quarter: 2014Q3

REPORT INFORMATION
  Report Type: Spontaneous
  Country: GB (occurrence: GB)
  Receive Date: 20140710
  Receipt Date: 20140814
  Transmission Date: 20150326
  Serious: Yes (Other)
  Sender: FDA-Public Use
  Company Number: GB-TEVA-491939ISR

PATIENT
  Age: 39 Year
  Sex: Female

DRUGS (8)
  1. MIRTAZAPINE. [Suspect]
     Active Substance: MIRTAZAPINE
     Dosage: 15 MG, QPM, ORODISPERSIBLE TABLET
     Route: 048
     Dates: start: 20140425
  2. SERC [Concomitant]
     Active Substance: BETAHISTINE HYDROCHLORIDE
     Dosage: 48 MILLIGRAM DAILY; 16 MG, TID
     Route: 065
  3. MIRTAZAPINE. [Suspect]
     Active Substance: MIRTAZAPINE
     Indication: MENIERE^S DISEASE
     Dosage: 30 MILLIGRAM DAILY; 30 MG, QPM, ORODISPERSIBLE TABLET
     Route: 048
     Dates: start: 20140512
  4. BENDROFLUMETHIAZIDE [Concomitant]
     Active Substance: BENDROFLUMETHIAZIDE
     Indication: MENIERE^S DISEASE
     Dosage: 5 MILLIGRAM DAILY; 5 MG, QAM
     Route: 065
     Dates: start: 201312
  5. BETAHISTINE [Concomitant]
     Active Substance: BETAHISTINE
     Dosage: 16 MILLIGRAM DAILY; 16 MG, QAM
     Route: 065
     Dates: start: 20140513
  6. BETAHISTINE [Concomitant]
     Active Substance: BETAHISTINE
     Indication: MENIERE^S DISEASE
     Dosage: 180 MILLIGRAM DAILY; 60 MG, TID
     Route: 065
     Dates: start: 20140425
  7. PROCHLORPERAZINE. [Concomitant]
     Active Substance: PROCHLORPERAZINE
     Indication: PRODUCT USED FOR UNKNOWN INDICATION
     Dosage: UNK, PRN
     Route: 002
  8. MOTILIUM [Concomitant]
     Active Substance: DOMPERIDONE
     Indication: MALAISE
     Dosage: UNK, PRN
     Route: 065

REACTIONS (13)
  - Dyspnoea [Not Recovered/Not Resolved]
  - Nausea [Not Recovered/Not Resolved]
  - Rash [Unknown]
  - Panic reaction [Unknown]
  - Depression [Unknown]
  - Vertigo [Not Recovered/Not Resolved]
  - Abdominal distension [Unknown]
  - Pain in extremity [Not Recovered/Not Resolved]
  - Malaise [Unknown]
  - Anxiety [Unknown]
  - Condition aggravated [Unknown]
  - Tremor [Unknown]
  - Pruritus generalised [Unknown]

NARRATIVE: CASE EVENT DATE: 20140501
